FAERS Safety Report 23097536 (Version 2)
Quarter: 2023Q4

REPORT INFORMATION
  Report Type: Report from Study
  Country: PL (occurrence: PL)
  Receive Date: 20231023
  Receipt Date: 20231030
  Transmission Date: 20240110
  Serious: Yes (Hospitalization)
  Sender: FDA-Public Use
  Company Number: PL-ABBVIE-5461476

PATIENT
  Age: 66 Year
  Sex: Female

DRUGS (3)
  1. CARBIDOPA\LEVODOPA [Suspect]
     Active Substance: CARBIDOPA\LEVODOPA
     Indication: Parkinson^s disease
     Dosage: EXTRA DOSE- 1.5 ML
     Route: 050
  2. CARBIDOPA\LEVODOPA [Suspect]
     Active Substance: CARBIDOPA\LEVODOPA
     Dosage: CONTINUOUS DOSE-2.2 ML
     Route: 050
  3. CARBIDOPA\LEVODOPA [Suspect]
     Active Substance: CARBIDOPA\LEVODOPA
     Dosage: MORNING DOSE= 8 ML
     Route: 050
     Dates: start: 20221129

REACTIONS (17)
  - Stoma site discharge [Unknown]
  - Therapeutic product effect incomplete [Recovered/Resolved]
  - Stoma site discomfort [Recovered/Resolved]
  - General physical health deterioration [Recovered/Resolved]
  - Staphylococcal infection [Recovered/Resolved]
  - Freezing phenomenon [Recovered/Resolved]
  - Device loosening [Recovered/Resolved]
  - Decreased appetite [Unknown]
  - Asthenia [Unknown]
  - Stoma site reaction [Recovered/Resolved]
  - Escherichia infection [Recovered/Resolved]
  - Stoma site hypergranulation [Recovered/Resolved]
  - Device leakage [Unknown]
  - Excessive granulation tissue [Unknown]
  - Abdominal pain upper [Not Recovered/Not Resolved]
  - On and off phenomenon [Recovered/Resolved]
  - Medical device discomfort [Recovered/Resolved]

NARRATIVE: CASE EVENT DATE: 20230508
